FAERS Safety Report 8654483 (Version 4)
Quarter: 2013Q1

REPORT INFORMATION
  Report Type: Report from Study
  Country: JP (occurrence: JP)
  Receive Date: 20120709
  Receipt Date: 20130131
  Transmission Date: 20140127
  Serious: Yes (Hospitalization)
  Sender: FDA-Public Use
  Company Number: JP-VERTEX PHARMACEUTICALS INC.-AE-2012-009791

PATIENT
  Age: 68 Year
  Sex: Female

DRUGS (16)
  1. VX-950 (TELAPREVIR) [Suspect]
     Indication: CHRONIC HEPATITIS C
     Dosage: 1500 MG, QD
     Route: 048
     Dates: start: 20120404, end: 20120419
  2. VX-950 (TELAPREVIR) [Suspect]
     Indication: OFF LABEL USE
     Dosage: 1500 MG, QD
     Route: 048
     Dates: start: 20120425, end: 20120508
  3. PEGINTERFERON ALFA-2B [Suspect]
     Indication: CHRONIC HEPATITIS C
     Dosage: 1.5 ?G/KG, QW
     Route: 058
     Dates: start: 20120404, end: 20120419
  4. PEGINTERFERON ALFA-2B [Suspect]
     Dosage: 60 ?G, QW
     Route: 058
     Dates: start: 20120425, end: 20120508
  5. RIBAVIRIN [Suspect]
     Indication: CHRONIC HEPATITIS C
     Dosage: 400 MG, QD
     Route: 048
     Dates: start: 20120404, end: 20120417
  6. RIBAVIRIN [Suspect]
     Dosage: 200 MG, QD
     Route: 048
     Dates: start: 20120418, end: 20120419
  7. RIBAVIRIN [Suspect]
     Dosage: 400 MG, QD
     Route: 048
     Dates: start: 20120425, end: 20120509
  8. RIBAVIRIN [Suspect]
     Dosage: 200 MG, QD
     Route: 048
     Dates: start: 20120510, end: 20120524
  9. SELBEX [Concomitant]
     Dosage: 3 DF, QD
     Route: 048
  10. LEMALC [Concomitant]
     Dosage: 200 MG, QD
     Route: 048
  11. ICROL [Concomitant]
     Dosage: 200 MG, QD
     Route: 048
  12. NEO-MINOPHAGEN C [Concomitant]
     Dosage: 60 UNK, PRN
     Route: 040
     Dates: start: 20120126
  13. BONALON [Concomitant]
     Dosage: 1 DF, QD
     Route: 048
  14. BONALON [Concomitant]
     Dosage: 35 MG, PRN
     Route: 048
     Dates: start: 20120411, end: 20120524
  15. DOGMATYL [Concomitant]
     Dosage: 3 DF, QD
     Route: 048
     Dates: start: 20120425, end: 20120524
  16. PRIMPERAN [Concomitant]
     Dosage: 15 MG, QD
     Route: 048
     Dates: start: 20120406

REACTIONS (2)
  - Restless legs syndrome [Recovered/Resolved]
  - Off label use [Unknown]
